FAERS Safety Report 18498351 (Version 1)
Quarter: 2020Q4

REPORT INFORMATION
  Report Type: Report from Study
  Country: DE (occurrence: DE)
  Receive Date: 20201112
  Receipt Date: 20201112
  Transmission Date: 20210114
  Serious: Yes (Death, Hospitalization, Other)
  Sender: FDA-Public Use
  Company Number: DE-SHIRE-DE201903327

PATIENT
  Age: 45 Year
  Sex: Female

DRUGS (4)
  1. HUMAN IMMUNOGLOBULIN; HYALURONIDASE [Suspect]
     Active Substance: HUMAN IMMUNOGLOBULIN G\HYALURONIDASE RECOMBINANT HUMAN
     Indication: IMMUNODEFICIENCY COMMON VARIABLE
     Dosage: 30 GRAM, 1X/2WKS
     Route: 058
     Dates: start: 20160704
  2. HUMAN IMMUNOGLOBULIN; HYALURONIDASE [Suspect]
     Active Substance: HUMAN IMMUNOGLOBULIN G\HYALURONIDASE RECOMBINANT HUMAN
     Dosage: 20 GRAM, MONTHLY
     Route: 058
     Dates: start: 20201007, end: 20201007
  3. HUMAN IMMUNOGLOBULIN; HYALURONIDASE [Suspect]
     Active Substance: HUMAN IMMUNOGLOBULIN G\HYALURONIDASE RECOMBINANT HUMAN
     Indication: PRIMARY IMMUNODEFICIENCY SYNDROME
     Dosage: 30 GRAM
     Route: 058
     Dates: start: 20200413
  4. HUMAN IMMUNOGLOBULIN; HYALURONIDASE [Suspect]
     Active Substance: HUMAN IMMUNOGLOBULIN G\HYALURONIDASE RECOMBINANT HUMAN
     Dosage: 30 GRAM
     Route: 058
     Dates: start: 20200513, end: 20200513

REACTIONS (7)
  - Multiple organ dysfunction syndrome [Fatal]
  - Blood pressure abnormal [Recovered/Resolved]
  - Lumbar puncture [Unknown]
  - Pyrexia [Recovered/Resolved]
  - Facial paralysis [Recovered/Resolved]
  - Pneumonia [Fatal]
  - Arthropod bite [Recovered/Resolved]

NARRATIVE: CASE EVENT DATE: 20190121
